FAERS Safety Report 17771020 (Version 1)
Quarter: 2020Q2

REPORT INFORMATION
  Report Type: Spontaneous
  Country: US (occurrence: US)
  Receive Date: 20200512
  Receipt Date: 20200512
  Transmission Date: 20200714
  Serious: No
  Sender: FDA-Public Use
  Company Number: US-ABBVIE-19K-163-2949121-00

PATIENT
  Sex: Male
  Weight: 78.54 kg

DRUGS (6)
  1. HYDRALAZINE [Suspect]
     Active Substance: HYDRALAZINE HYDROCHLORIDE
     Indication: HYPERTENSION
     Route: 065
  2. GENGRAF [Suspect]
     Active Substance: CYCLOSPORINE
     Indication: HEART TRANSPLANT
     Dosage: 200 MG IN MORNING AND 200 MG AT NIGHT
     Route: 048
     Dates: start: 2012
  3. RAPAMUNE [Suspect]
     Active Substance: SIROLIMUS
     Indication: HEART TRANSPLANT
     Dosage: 1 MG ONCE A DAY IN AFTERNOON, 4 HOURS AFTER OR 4 HOURS BEFORE TAKING GENGRAFF
     Route: 048
     Dates: start: 2012
  4. GENGRAF [Suspect]
     Active Substance: CYCLOSPORINE
     Indication: IMMUNOSUPPRESSANT DRUG THERAPY
     Dosage: 125 MG IN MORNING AND 100 MG AT NIGHT
     Route: 048
  5. NIFEDIPINE. [Concomitant]
     Active Substance: NIFEDIPINE
     Indication: HYPERTENSION
  6. GENGRAF [Suspect]
     Active Substance: CYCLOSPORINE
     Dosage: 100 MG IN MORNING TO 50 MG AT NIGHT
     Route: 048
     Dates: start: 2019

REACTIONS (2)
  - Blood creatine increased [Unknown]
  - Somnolence [Unknown]
